FAERS Safety Report 9522060 (Version 2)
Quarter: 2014Q4

REPORT INFORMATION
  Report Type: Spontaneous
  Country: US (occurrence: US)
  Receive Date: 20130913
  Receipt Date: 20141006
  Transmission Date: 20150529
  Serious: Yes (Hospitalization, Other)
  Sender: FDA-Public Use
  Company Number: US-BAYER-2013-110267

PATIENT
  Age: 27 Year
  Sex: Female
  Weight: 62 kg

DRUGS (1)
  1. MIRENA [Suspect]
     Active Substance: LEVONORGESTREL
     Indication: CONTRACEPTION
     Dosage: 20 MCG/24HR, CONT
     Route: 015
     Dates: start: 20100211, end: 20110812

REACTIONS (9)
  - Emotional distress [None]
  - Uterine perforation [None]
  - Fear of disease [None]
  - Pain [None]
  - Device issue [None]
  - Medical device discomfort [None]
  - Medical device complication [None]
  - Injury [None]
  - Abortion spontaneous [None]

NARRATIVE: CASE EVENT DATE: 201105
